FAERS Safety Report 13010912 (Version 1)
Quarter: 2016Q4

REPORT INFORMATION
  Report Type: Spontaneous
  Country: FR (occurrence: FR)
  Receive Date: 20161208
  Receipt Date: 20161208
  Transmission Date: 20170207
  Serious: Yes (Life-Threatening)
  Sender: FDA-Public Use
  Company Number: FR-ASTRAZENECA-2016SF27821

PATIENT
  Age: 24356 Day
  Sex: Male

DRUGS (11)
  1. DIAMICRON [Suspect]
     Active Substance: GLICLAZIDE
     Indication: TYPE 2 DIABETES MELLITUS
     Dosage: 60 MG BID.
     Route: 065
     Dates: end: 20161101
  2. METFORMINE [Suspect]
     Active Substance: METFORMIN HYDROCHLORIDE
     Indication: TYPE 2 DIABETES MELLITUS
     Dosage: 1 GRAM/D,
     Route: 065
     Dates: end: 20161101
  3. LERCAPRESS [Suspect]
     Active Substance: ENALAPRIL MALEATE\LERCANIDIPINE HYDROCHLORIDE
     Indication: ACUTE CORONARY SYNDROME
     Dosage: 1 DF/D
     Route: 065
     Dates: start: 201610, end: 20161101
  4. KARDEGIC [Concomitant]
     Active Substance: ASPIRIN LYSINE
     Dosage: 75 MG
  5. CRESTOR [Suspect]
     Active Substance: ROSUVASTATIN CALCIUM
     Indication: ACUTE CORONARY SYNDROME
     Route: 048
     Dates: end: 20161101
  6. EUCREAS [Suspect]
     Active Substance: METFORMIN HYDROCHLORIDE\VILDAGLIPTIN
     Indication: TYPE 2 DIABETES MELLITUS
     Dosage: 1 DF BID
     Route: 065
     Dates: end: 20161101
  7. METOPROLOL. [Concomitant]
     Active Substance: METOPROLOL
  8. CLOPIDOGREL [Concomitant]
     Active Substance: CLOPIDOGREL BISULFATE
  9. RABEPRAZOLE [Concomitant]
     Active Substance: RABEPRAZOLE
  10. VICTOZA [Suspect]
     Active Substance: LIRAGLUTIDE
     Indication: TYPE 2 DIABETES MELLITUS
     Dosage: 1 PER DAY
     Route: 058
     Dates: end: 20161101
  11. VOLTARENE [Suspect]
     Active Substance: DICLOFENAC SODIUM
     Indication: SCIATIC NERVE INJURY
     Route: 065
     Dates: start: 20161031, end: 20161101

REACTIONS (4)
  - Blood glucose decreased [Unknown]
  - Acute kidney injury [Recovered/Resolved]
  - Lactic acidosis [Recovered/Resolved]
  - Sciatic nerve injury [Unknown]

NARRATIVE: CASE EVENT DATE: 20161101
